FAERS Safety Report 5256020-0 (Version None)
Quarter: 2007Q1

REPORT INFORMATION
  Report Type: 
  Country: None (occurrence: None)
  Receive Date: 20070301
  Receipt Date: 20070220
  Transmission Date: 20070707
  Serious: Yes (Life-Threatening, Hospitalization, Other)
  Sender: FDA-Public Use
  Company Number: GXKR2007GB01886

PATIENT
  Age: 79 Year
  Sex: Female

DRUGS (1)
  1. TRIMETHOPRIM [Suspect]
     Dosage: 200 MG, BID, ORAL
     Route: 048
     Dates: start: 20070104, end: 20070106

REACTIONS (1)
  - AGRANULOCYTOSIS [None]
